FAERS Safety Report 4322142-1 (Version None)
Quarter: 2004Q1

REPORT INFORMATION
  Report Type: 
  Country: None (occurrence: None)
  Receive Date: 20040319
  Receipt Date: 20040309
  Transmission Date: 20041129
  Serious: Yes (Other)
  Sender: FDA-Public Use
  Company Number: 2003-12-1107

PATIENT
  Age: 48 Year
  Sex: Male
  Weight: 80 kg

DRUGS (4)
  1. TEMODAR [Suspect]
  2. INTRON A [Suspect]
     Dosage: 9 MIU INTRAVENOUS
     Route: 042
     Dates: start: 20031211, end: 20031211
  3. CISPLATIN [Suspect]
  4. VINBLASTINE SULFATE [Suspect]

REACTIONS (1)
  - BLOOD PRESSURE DECREASED [None]
